FAERS Safety Report 7189348-8 (Version None)
Quarter: 2010Q4

REPORT INFORMATION
  Report Type: 
  Country: None (occurrence: None)
  Receive Date: 20101222
  Receipt Date: 20100819
  Transmission Date: 20110411
  Serious: No
  Sender: FDA-Public Use
  Company Number: US-AMGEN-TCS422368

PATIENT

DRUGS (11)
  1. ENBREL [Suspect]
     Indication: RHEUMATOID ARTHRITIS
     Dosage: 50 MG, QWK
     Route: 058
     Dates: start: 20090522
  2. METHOTREXATE [Concomitant]
     Dosage: 15 MG, UNK
     Dates: start: 20090122, end: 20091217
  3. IBUPROFEN [Concomitant]
     Dosage: 600 MG, UNK
     Dates: start: 20090122, end: 20100527
  4. VACCINES [Concomitant]
     Dosage: UNK UNK, UNK
  5. DICYCLOVERINE HYDROCHLORIDE [Concomitant]
     Dosage: 10 MG, UNK
     Dates: start: 20090122
  6. LORATADINE [Concomitant]
     Dosage: 10 MG, UNK
     Dates: start: 20100101
  7. MECLIZINE [Concomitant]
     Dosage: 12.5 MG, UNK
     Dates: start: 20091225
  8. TRIAMTERENE AND HYDROCHLOROTHIAZIDE [Concomitant]
     Dosage: UNK UNK, UNK
     Dates: start: 20100101
  9. ESOMEPRAZOLE MAGNESIUM [Concomitant]
     Dosage: 40 MG, UNK
     Dates: start: 20090122, end: 20091217
  10. PHENYLEPHRINE, CHLORPHENIRAMINE + PYRILAMINE [Concomitant]
     Dosage: UNK UNK, UNK
     Dates: start: 20090122
  11. DEXLANSOPRAZOLE [Concomitant]
     Dosage: UNK UNK, UNK
     Dates: start: 20100528

REACTIONS (13)
  - ABDOMINAL DISTENSION [None]
  - ARTHRALGIA [None]
  - ARTHROPATHY [None]
  - ASTHENIA [None]
  - BURSITIS [None]
  - DYSPEPSIA [None]
  - EAR INFECTION [None]
  - FATIGUE [None]
  - FLATULENCE [None]
  - GASTRIC POLYPS [None]
  - NAUSEA [None]
  - PYREXIA [None]
  - VERTIGO [None]
